FAERS Safety Report 8338655 (Version 3)
Quarter: 2012Q4

REPORT INFORMATION
  Report Type: 
  Country: US (occurrence: US)
  Receive Date: 20120117
  Receipt Date: 20121213
  Transmission Date: 20130627
  Serious: Yes (Death, Other)
  Sender: FDA-Public Use
  Company Number: US-BAYER-2012-004131

PATIENT
  Age: 81 Year
  Sex: Male

DRUGS (3)
  1. NEXAVAR [Suspect]
     Indication: LIVER, CANCER OF
     Dosage: 400 mg,
     Dates: start: 20111224, end: 20111225
  2. NEXAVAR [Suspect]
     Indication: LIVER, CANCER OF
     Dosage: 200 mg, BID
     Dates: start: 20120109
  3. NEXAVAR [Suspect]
     Indication: LIVER, CANCER OF
     Dosage: 200 mg, QD
     Route: 048
     Dates: start: 20120125

REACTIONS (10)
  - Feeling abnormal [Recovered/Resolved]
  - Death [Fatal]
  - Cardiac discomfort [Recovered/Resolved]
  - Paraesthesia [Recovered/Resolved]
  - Hot flush [Recovered/Resolved]
  - Diarrhoea [Not Recovered/Not Resolved]
  - Decreased appetite [Not Recovered/Not Resolved]
  - Fatigue [Not Recovered/Not Resolved]
  - Asthenia [Not Recovered/Not Resolved]
  - Weight decreased [Not Recovered/Not Resolved]
